FAERS Safety Report 12252301 (Version 2)
Quarter: 2016Q2

REPORT INFORMATION
  Report Type: Spontaneous
  Country: US (occurrence: US)
  Receive Date: 20160411
  Receipt Date: 20160503
  Transmission Date: 20160815
  Serious: No
  Sender: FDA-Public Use
  Company Number: US-BAYER-2016-060771

PATIENT
  Age: 62 Year
  Sex: Female
  Weight: 47.62 kg

DRUGS (3)
  1. CHILDREN CLARITIN ALLERGY [Suspect]
     Active Substance: LORATADINE
     Indication: SEASONAL ALLERGY
     Dosage: 2 DF (TEASPOONS), QD
     Route: 048
     Dates: start: 20160326, end: 20160328
  2. TUMERIC [Concomitant]
     Active Substance: TURMERIC
     Dosage: UNK
  3. D-MANNOSE [Concomitant]
     Dosage: UNK

REACTIONS (3)
  - Salivary hypersecretion [Recovered/Resolved]
  - Somnolence [Recovered/Resolved]
  - Drooling [Recovered/Resolved]

NARRATIVE: CASE EVENT DATE: 20160326
